FAERS Safety Report 17698370 (Version 1)
Quarter: 2020Q2

REPORT INFORMATION
  Report Type: Spontaneous
  Country: US (occurrence: US)
  Receive Date: 20200423
  Receipt Date: 20200423
  Transmission Date: 20200714
  Serious: No
  Sender: FDA-Public Use
  Company Number: US-PFIZER INC-2020159553

PATIENT
  Weight: 68.03 kg

DRUGS (3)
  1. ADVIL [Suspect]
     Active Substance: IBUPROFEN
     Dosage: 200 MG, ONE AND THEN ANOTHER 200 MG ABOUT AN HOUR LATER, GOING TO TRY TO DO 3 AND TRY THE 600 MG
  2. ADVIL [Suspect]
     Active Substance: IBUPROFEN
     Indication: TEMPOROMANDIBULAR JOINT SYNDROME
     Dosage: 600 MG, 3X/DAY
  3. ADVIL [Suspect]
     Active Substance: IBUPROFEN
     Dosage: 200 MG, EVERY PROBABLY 4 OR 6 HOURS

REACTIONS (2)
  - Headache [Unknown]
  - Intentional product misuse [Unknown]
